FAERS Safety Report 10207185 (Version 1)
Quarter: 2014Q2

REPORT INFORMATION
  Report Type: Spontaneous
  Country: US (occurrence: US)
  Receive Date: 20140530
  Receipt Date: 20140530
  Transmission Date: 20141212
  Serious: No
  Sender: FDA-Public Use
  Company Number: US-GLAXOSMITHKLINE-A1022867A

PATIENT
  Age: 64 Year
  Sex: Male

DRUGS (2)
  1. VENTOLIN [Suspect]
     Indication: ASTHMA
     Dosage: 2PUFF FOUR TIMES PER DAY
     Route: 055
     Dates: start: 201201
  2. QVAR [Concomitant]

REACTIONS (3)
  - Condition aggravated [Recovering/Resolving]
  - Therapeutic response decreased [Unknown]
  - Expired product administered [Unknown]
